FAERS Safety Report 6091259-6 (Version None)
Quarter: 2009Q1

REPORT INFORMATION
  Report Type: 
  Country: None (occurrence: None)
  Receive Date: 20090225
  Receipt Date: 20090216
  Transmission Date: 20090719
  Serious: Yes (Disabling, Other)
  Sender: FDA-Public Use
  Company Number: GB-BRISTOL-MYERS SQUIBB COMPANY-14516884

PATIENT
  Age: 61 Year
  Sex: Male

DRUGS (4)
  1. LYSODREN [Suspect]
     Indication: ADRENOCORTICAL CARCINOMA
     Dosage: INCREASED RAPIDLY TO 5GM DAILY
     Route: 048
     Dates: start: 20080501
  2. THYROXINE [Suspect]
     Indication: HYPOTHYROIDISM
     Route: 048
  3. HYDROCORTISONE [Concomitant]
     Route: 048
     Dates: start: 20080501
  4. PROBIOTICA [Concomitant]
     Route: 048

REACTIONS (4)
  - CEREBELLAR ATAXIA [None]
  - ENCEPHALOPATHY [None]
  - HYPOGONADISM [None]
  - PRURITUS GENERALISED [None]
